FAERS Safety Report 18413895 (Version 3)
Quarter: 2020Q4

REPORT INFORMATION
  Report Type: Spontaneous
  Country: US (occurrence: US)
  Receive Date: 20201022
  Receipt Date: 20201125
  Transmission Date: 20210114
  Serious: No
  Sender: FDA-Public Use
  Company Number: US-ASTRAZENECA-2020SF35189

PATIENT
  Sex: Male

DRUGS (1)
  1. BYDUREON BCISE [Suspect]
     Active Substance: EXENATIDE
     Dosage: 2.0MG UNKNOWN
     Route: 065

REACTIONS (5)
  - Device use issue [Not Recovered/Not Resolved]
  - Drug delivery system issue [Unknown]
  - Incorrect dose administered by device [Unknown]
  - Intentional device misuse [Not Recovered/Not Resolved]
  - Device leakage [Unknown]
